FAERS Safety Report 8174596-0 (Version None)
Quarter: 2012Q1

REPORT INFORMATION
  Report Type: 
  Country: None (occurrence: None)
  Receive Date: 20120229
  Receipt Date: 20120226
  Transmission Date: 20120608
  Serious: Yes (Other)
  Sender: FDA-Public Use
  Company Number: US-PFIZER INC-2012007242

PATIENT
  Sex: Female
  Weight: 73 kg

DRUGS (9)
  1. CLONAZEPAM [Concomitant]
     Indication: NERVE INJURY
     Dosage: UNK
  2. ESTRADIOL [Concomitant]
     Dosage: UNK
  3. SINGULAIR [Concomitant]
     Indication: ASTHMA
     Dosage: 10 MG, UNK
  4. CHANTIX [Suspect]
     Indication: SMOKING CESSATION THERAPY
     Dosage: 0.5 MG, 1X/DAY
     Route: 048
     Dates: start: 20120104, end: 20120106
  5. CHANTIX [Suspect]
     Dosage: 0.5 MG, 2X/DAY
     Dates: start: 20120107, end: 20120101
  6. ALBUTEROL [Concomitant]
     Indication: ASTHMA
     Dosage: UNK
  7. LEVOTHYROXINE [Concomitant]
     Indication: HYPOTHYROIDISM
     Dosage: 50 UG, UNK
  8. IMITREX [Concomitant]
     Indication: MIGRAINE
     Dosage: UNK, AS NEEDED
  9. CHANTIX [Suspect]
     Dosage: UNK
     Route: 048
     Dates: start: 20120101, end: 20120125

REACTIONS (6)
  - DYSPNOEA [None]
  - RESPIRATORY TRACT CONGESTION [None]
  - CARDIAC FLUTTER [None]
  - CHEST PAIN [None]
  - HEADACHE [None]
  - SLEEP DISORDER [None]
